FAERS Safety Report 14216425 (Version 2)
Quarter: 2017Q4

REPORT INFORMATION
  Report Type: Spontaneous
  Country: JP (occurrence: JP)
  Receive Date: 20171122
  Receipt Date: 20171130
  Transmission Date: 20180321
  Serious: Yes (Death, Other)
  Sender: FDA-Public Use
  Company Number: JP-SHIONOGI, INC-2017001251

PATIENT
  Age: 73 Year
  Sex: Male

DRUGS (2)
  1. SYMPROIC [Suspect]
     Active Substance: NALDEMEDINE
     Indication: CONSTIPATION
     Dosage: 0.2 MG, QD
     Route: 048
     Dates: start: 201707, end: 201707
  2. OXYCONTIN [Suspect]
     Active Substance: OXYCODONE HYDROCHLORIDE
     Indication: CANCER PAIN
     Dosage: 10 MG, QD
     Route: 048
     Dates: start: 201706, end: 201707

REACTIONS (2)
  - Lung neoplasm malignant [Fatal]
  - Delirium [Unknown]

NARRATIVE: CASE EVENT DATE: 201707
